FAERS Safety Report 4662148-6 (Version None)
Quarter: 2005Q2

REPORT INFORMATION
  Report Type: 
  Country: None (occurrence: None)
  Receive Date: 20050512
  Receipt Date: 20050428
  Transmission Date: 20051028
  Serious: Yes (Other)
  Sender: FDA-Public Use
  Company Number: 8010384

PATIENT
  Age: 23 Year
  Sex: Male

DRUGS (3)
  1. LORTAB [Suspect]
  2. METHADONE HCL [Suspect]
  3. FENTANYL [Suspect]

REACTIONS (1)
  - OVERDOSE [None]
